FAERS Safety Report 16642463 (Version 1)
Quarter: 2019Q3

REPORT INFORMATION
  Report Type: Spontaneous
  Country: AR (occurrence: AR)
  Receive Date: 20190729
  Receipt Date: 20190729
  Transmission Date: 20191004
  Serious: Yes (Other)
  Sender: FDA-Public Use
  Company Number: AR-SUPERNUS PHARMACEUTICALS, INC.-2019SUP00387

PATIENT
  Age: 7 Year
  Sex: Female

DRUGS (2)
  1. VALPROIC ACID. [Concomitant]
     Active Substance: VALPROIC ACID
     Indication: PARTIAL SEIZURES
     Dosage: 750 MG/KG, 1X/DAY
     Route: 065
  2. OXCARBAZEPINE. [Suspect]
     Active Substance: OXCARBAZEPINE
     Indication: PARTIAL SEIZURES
     Dosage: 30 MG/KG, 1X/DAY
     Route: 065

REACTIONS (1)
  - Petit mal epilepsy [Recovered/Resolved]
